FAERS Safety Report 9752993 (Version 1)
Quarter: 2013Q4

REPORT INFORMATION
  Report Type: Spontaneous
  Country: BR (occurrence: BR)
  Receive Date: 20131213
  Receipt Date: 20131213
  Transmission Date: 20140711
  Serious: Yes (Other)
  Sender: FDA-Public Use
  Company Number: BR-PFIZER INC-2013351912

PATIENT
  Sex: Female

DRUGS (3)
  1. CELEBRA [Suspect]
     Indication: HEADACHE
     Dosage: UNK
     Route: 048
  2. CELEBRA [Suspect]
     Indication: MIGRAINE
  3. TOPAMAX [Concomitant]
     Dosage: UNK

REACTIONS (9)
  - Off label use [Unknown]
  - Altered state of consciousness [Unknown]
  - Feeling abnormal [Unknown]
  - Dizziness [Unknown]
  - Memory impairment [Unknown]
  - Dysphonia [Unknown]
  - Head discomfort [Unknown]
  - Diplopia [Unknown]
  - Somnolence [Unknown]
